FAERS Safety Report 14596359 (Version 1)
Quarter: 2018Q1

REPORT INFORMATION
  Report Type: Spontaneous
  Country: FR (occurrence: FR)
  Receive Date: 20180303
  Receipt Date: 20180303
  Transmission Date: 20180509
  Serious: Yes (Hospitalization)
  Sender: FDA-Public Use
  Company Number: FR-AUROBINDO-AUR-APL-2018-011111

PATIENT
  Age: 57 Year
  Sex: Male

DRUGS (5)
  1. SPIRAMYCINE [Concomitant]
     Active Substance: SPIRAMYCIN
     Indication: PRODUCT USED FOR UNKNOWN INDICATION
     Dosage: ()
     Route: 048
     Dates: start: 20170212, end: 20170217
  2. METRONIDAZOLE. [Concomitant]
     Active Substance: METRONIDAZOLE
     Indication: PRODUCT USED FOR UNKNOWN INDICATION
     Dosage: INCONNUE ()
     Route: 048
     Dates: start: 20170212, end: 20170217
  3. AZITHROMYCINE [Concomitant]
     Active Substance: AZITHROMYCIN DIHYDRATE
     Indication: PRODUCT USED FOR UNKNOWN INDICATION
     Dosage: INCONNUE ()
     Route: 048
     Dates: start: 20170217, end: 20170220
  4. IBUPROFEN. [Suspect]
     Active Substance: IBUPROFEN
     Indication: TOOTHACHE
     Dosage: INCONNUE ()
     Route: 048
     Dates: start: 20170212, end: 20170221
  5. PARACETAMOL [Concomitant]
     Active Substance: ACETAMINOPHEN
     Indication: PRODUCT USED FOR UNKNOWN INDICATION
     Dosage: INCONNUE ()
     Route: 048

REACTIONS (1)
  - Tooth abscess [Recovered/Resolved]

NARRATIVE: CASE EVENT DATE: 20170221
